FAERS Safety Report 6626422-6 (Version None)
Quarter: 2010Q1

REPORT INFORMATION
  Report Type: 
  Country: None (occurrence: None)
  Receive Date: 20100310
  Receipt Date: 20100224
  Transmission Date: 20100710
  Serious: Yes (Hospitalization)
  Sender: FDA-Public Use
  Company Number: JP-ABBOTT-10P-087-0631203-00

PATIENT
  Age: 37 Year
  Sex: Female

DRUGS (2)
  1. LEUPROLIDE ACETATE [Suspect]
     Indication: BREAST CANCER
     Route: 058
     Dates: start: 20060606
  2. LANSOPRAZOLE [Concomitant]
     Indication: GASTRIC ULCER
     Route: 048
     Dates: start: 20070921

REACTIONS (3)
  - BRAIN NEOPLASM [None]
  - GENITAL HAEMORRHAGE [None]
  - PAIN IN EXTREMITY [None]
